FAERS Safety Report 20905679 (Version 1)
Quarter: 2022Q2

REPORT INFORMATION
  Report Type: Spontaneous
  Country: US (occurrence: US)
  Receive Date: 20220602
  Receipt Date: 20220602
  Transmission Date: 20220720
  Serious: Yes (Death, Other)
  Sender: FDA-Public Use
  Company Number: US-SAKK-2018SA230997AA

PATIENT
  Age: 75 Year
  Sex: Male

DRUGS (3)
  1. DILTIAZEM HYDROCHLORIDE [Suspect]
     Active Substance: DILTIAZEM HYDROCHLORIDE
     Indication: Product used for unknown indication
     Route: 065
  2. AMIODARONE HYDROCHLORIDE [Suspect]
     Active Substance: AMIODARONE HYDROCHLORIDE
     Indication: Product used for unknown indication
     Route: 065
  3. ATENOLOL [Suspect]
     Active Substance: ATENOLOL
     Indication: Product used for unknown indication
     Route: 065

REACTIONS (9)
  - Respiratory depression [Fatal]
  - Dystonia [Fatal]
  - Muscle rigidity [Fatal]
  - Electrocardiogram QRS complex prolonged [Fatal]
  - Bradycardia [Fatal]
  - Toxicity to various agents [Fatal]
  - Hypotension [Fatal]
  - Arrhythmia [Fatal]
  - Brain death [Fatal]
